FAERS Safety Report 4949433-5 (Version None)
Quarter: 2006Q1

REPORT INFORMATION
  Report Type: 
  Country: None (occurrence: None)
  Receive Date: 20060321
  Receipt Date: 20051021
  Transmission Date: 20060701
  Serious: Yes (Hospitalization)
  Sender: FDA-Public Use
  Company Number: AU-AMGEN-US155324

PATIENT
  Sex: Male

DRUGS (4)
  1. KINERET [Suspect]
     Indication: RHEUMATOID ARTHRITIS
     Route: 058
     Dates: start: 20050915
  2. GOLD SODIUM THIOMALATE [Suspect]
     Dates: start: 20010101
  3. LEFLUNOMIDE [Concomitant]
     Dates: start: 20040101
  4. METHOTREXATE [Concomitant]
     Dates: start: 20000101

REACTIONS (7)
  - DERMATOSIS [None]
  - DRUG HYPERSENSITIVITY [None]
  - HYPERSENSITIVITY [None]
  - PARAKERATOSIS [None]
  - PERIVASCULAR DERMATITIS [None]
  - SERUM SICKNESS [None]
  - URTICARIA PIGMENTOSA [None]
